FAERS Safety Report 9468111 (Version 1)
Quarter: 2013Q3

REPORT INFORMATION
  Report Type: Report from Study
  Country: CA (occurrence: CA)
  Receive Date: 20130821
  Receipt Date: 20130821
  Transmission Date: 20140515
  Serious: Yes (Other)
  Sender: FDA-Public Use
  Company Number: PHHY2013CA089885

PATIENT
  Age: 85 Year
  Sex: Female

DRUGS (18)
  1. EVEROLIMUS [Suspect]
     Indication: METASTATIC RENAL CELL CARCINOMA
     Dosage: 10 MG, DAILY
     Route: 048
     Dates: start: 20130617, end: 20130714
  2. EVEROLIMUS [Suspect]
     Dosage: 5 MG, DAILY
     Dates: start: 20130717, end: 20130722
  3. TYLENOL [Concomitant]
     Dates: start: 1998
  4. RIVOTRIL [Concomitant]
     Dates: start: 201203
  5. GRAVOL [Concomitant]
     Dates: start: 1998
  6. COLACE [Concomitant]
     Dates: start: 20120502
  7. GLYCERIN [Concomitant]
     Dates: start: 201205
  8. APO HYDRO [Concomitant]
     Dates: start: 2000
  9. AVAPRO [Concomitant]
     Dates: start: 2000
  10. OXYCODONE [Concomitant]
     Dates: start: 2010
  11. PANTOLOC ^BYK GULDEN^ [Concomitant]
     Dates: start: 201205
  12. POLYETHYLENE GLYCOL [Concomitant]
     Dates: start: 201205
  13. LYRICA [Concomitant]
     Dates: start: 201205
  14. QUININE [Concomitant]
     Dates: start: 1998
  15. SENOKOT                                 /UNK/ [Concomitant]
     Dates: start: 201205
  16. CHOLECALCIFEROL [Concomitant]
     Dates: start: 201205
  17. FENTANYL [Concomitant]
     Dates: start: 20120602
  18. ANUGESIC HC [Concomitant]
     Dates: start: 201205

REACTIONS (7)
  - Ventricular dysfunction [Recovering/Resolving]
  - Chest pain [Recovering/Resolving]
  - Troponin T increased [Unknown]
  - Dizziness [Unknown]
  - Diarrhoea [Unknown]
  - Fatigue [Unknown]
  - Asthenia [Unknown]
